FAERS Safety Report 24187253 (Version 1)
Quarter: 2024Q3

REPORT INFORMATION
  Report Type: Spontaneous
  Country: FR (occurrence: FR)
  Receive Date: 20240808
  Receipt Date: 20240808
  Transmission Date: 20241017
  Serious: Yes (Hospitalization, Other)
  Sender: AUROBINDO
  Company Number: FR-AFSSAPS-PC2024000603

PATIENT
  Age: 93 Year
  Sex: Female
  Weight: 44 kg

DRUGS (9)
  1. FUROSEMIDE [Suspect]
     Active Substance: FUROSEMIDE
     Indication: Hypertrophic cardiomyopathy
     Dosage: 3 DOSAGE FORM(1 TOTAL)2.1.0(40 MG)
     Route: 048
  2. RAMIPRIL [Suspect]
     Active Substance: RAMIPRIL
     Indication: Hypertension
     Dosage: 1 DOSAGE FORM(1 TOTAL)1.0.0(1,25 MG)
     Route: 048
  3. ATORVASTATIN [Concomitant]
     Active Substance: ATORVASTATIN
     Indication: Dyslipidaemia
     Dosage: 1 DOSAGE FORM, (1 TOTAL)0.0.1(10 MG)
     Route: 048
  4. BISOPROLOL [Concomitant]
     Active Substance: BISOPROLOL\BISOPROLOL FUMARATE
     Indication: Hypertrophic cardiomyopathy
     Dosage: 1 DOSAGE FORM(1 TOTAL) 1.0.0(1,25 MG)
     Route: 048
  5. DOLIPRANE [Concomitant]
     Active Substance: ACETAMINOPHEN
     Indication: Pain
     Dosage: 6 DOSAGE FORM, ONCE A DAY(2 G?LULES 3 FOIS PAR JOUR SI BESOIN)
     Route: 048
  6. POLYETHYLENE GLYCOLS [Concomitant]
     Active Substance: POLYETHYLENE GLYCOLS
     Indication: Constipation
     Dosage: 1 DOSAGE FORM(1 TOTAL)1.0.0
     Route: 048
  7. TRAMADOL [Concomitant]
     Active Substance: TRAMADOL\TRAMADOL HYDROCHLORIDE
     Indication: Pain
     Dosage: 3 DOSAGE FORM, ONCE A DAY(1 COMPRIM? 3 FOIS PAR JOUR SI DOULEURS NON SOULAG?ES PAR LE DOLIPRANE)
     Route: 048
  8. Previscan [Concomitant]
     Indication: Atrial fibrillation
     Dosage: 0.75 DOSAGE FORM(1 TOTAL)0.0.3/4
     Route: 048
  9. OXAZEPAM [Concomitant]
     Active Substance: OXAZEPAM
     Indication: Product used for unknown indication
     Dosage: 1 DOSAGE FORM, ONCE A DAY(1 COMPRIM? LE SOIR)
     Route: 048

REACTIONS (2)
  - Hyperkalaemia [Recovering/Resolving]
  - Acute kidney injury [Recovered/Resolved]

NARRATIVE: CASE EVENT DATE: 20180620
